FAERS Safety Report 7341769-6 (Version None)
Quarter: 2011Q1

REPORT INFORMATION
  Report Type: 
  Country: None (occurrence: None)
  Receive Date: 20110309
  Receipt Date: 20110304
  Transmission Date: 20110831
  Serious: Yes (Other)
  Sender: FDA-Public Use
  Company Number: JP-PFIZER INC-2011048578

PATIENT
  Age: 68 Year
  Sex: Female

DRUGS (8)
  1. RIVOTRIL [Concomitant]
     Dosage: 0.5 MG, 3X/DAY
     Route: 048
  2. GLAKAY [Concomitant]
     Dosage: 15 MG, 3X/DAY
     Route: 048
  3. BREDININ [Concomitant]
     Dosage: 75 MG, 2X/DAY
     Route: 048
  4. MEVALOTIN [Concomitant]
     Dosage: 10 MG, 2X/DAY
     Route: 048
  5. LYRICA [Suspect]
     Indication: NEURALGIA
     Dosage: 75 MG, 2X/DAY
     Route: 048
     Dates: start: 20110202, end: 20110215
  6. PREDONINE [Concomitant]
     Dosage: 5 MG, 1X/DAY
     Route: 048
  7. TAGAMET DUAL ACTION [Concomitant]
     Dosage: 200 MG, 2X/DAY
     Route: 048
  8. TORASEMIDE [Concomitant]
     Dosage: 4 MG, 1X/DAY
     Route: 048

REACTIONS (3)
  - SOMNOLENCE [None]
  - OEDEMA PERIPHERAL [None]
  - EXTRASYSTOLES [None]
